FAERS Safety Report 24194657 (Version 1)
Quarter: 2024Q3

REPORT INFORMATION
  Report Type: Spontaneous
  Country: US (occurrence: US)
  Receive Date: 20240809
  Receipt Date: 20240809
  Transmission Date: 20241016
  Serious: Yes (Other)
  Sender: INSMED
  Company Number: US-INSMED, INC.-2024-03122-US

PATIENT

DRUGS (1)
  1. ARIKAYCE [Suspect]
     Active Substance: AMIKACIN
     Indication: Product used for unknown indication
     Dosage: UNK, UNK, UNK
     Route: 055

REACTIONS (4)
  - Condition aggravated [Unknown]
  - Fear [Recovered/Resolved]
  - Fatigue [Unknown]
  - Adverse drug reaction [Unknown]
